FAERS Safety Report 4807006-9 (Version None)
Quarter: 2005Q4

REPORT INFORMATION
  Report Type: 
  Country: None (occurrence: None)
  Receive Date: 20051024
  Receipt Date: 20050914
  Transmission Date: 20060501
  Serious: Yes (Death, Hospitalization, Other)
  Sender: FDA-Public Use
  Company Number: AU-BRISTOL-MYERS SQUIBB COMPANY-13114707

PATIENT
  Age: 79 Year
  Sex: Male

DRUGS (5)
  1. MUCOMYST [Suspect]
     Indication: NEPHROPATHY TOXIC
     Dosage: PRESCRIBED DOSE OF 600MG, BUT RECEIVED 3 GRAMS AS TOTAL DOSE.
     Route: 048
     Dates: start: 20050712, end: 20050712
  2. CEFTRIAXONE [Concomitant]
     Indication: ENDOCARDITIS
     Route: 042
     Dates: start: 20050710, end: 20050715
  3. ACETAMINOPHEN [Concomitant]
     Dosage: QID PRN
     Dates: start: 20050710, end: 20050713
  4. ATENOLOL [Concomitant]
     Route: 048
     Dates: start: 20050710, end: 20050714
  5. SLOW-K [Concomitant]
     Route: 048
     Dates: start: 20050710, end: 20050715

REACTIONS (3)
  - ACCIDENTAL OVERDOSE [None]
  - INCORRECT DOSE ADMINISTERED [None]
  - MULTI-ORGAN FAILURE [None]
